FAERS Safety Report 6170419-X (Version None)
Quarter: 2009Q2

REPORT INFORMATION
  Report Type: 
  Country: None (occurrence: None)
  Receive Date: 20090428
  Receipt Date: 20090421
  Transmission Date: 20091009
  Serious: Yes (Other)
  Sender: FDA-Public Use
  Company Number: US-ELI_LILLY_AND_COMPANY-US200903006029

PATIENT
  Sex: Female

DRUGS (3)
  1. HUMALOG [Suspect]
     Indication: DIABETES MELLITUS
     Dosage: UNK, UNK
     Dates: start: 20020101
  2. INSULIN [Concomitant]
  3. LANTUS [Concomitant]
     Indication: DIABETES MELLITUS

REACTIONS (5)
  - CATARACT [None]
  - CATARACT OPERATION COMPLICATION [None]
  - FOREIGN BODY IN EYE [None]
  - HERPES ZOSTER [None]
  - RENAL FAILURE [None]
